FAERS Safety Report 9053307 (Version 2)
Quarter: 2013Q1

REPORT INFORMATION
  Report Type: Report from Study
  Country: CA (occurrence: CA)
  Receive Date: 20130207
  Receipt Date: 20130306
  Transmission Date: 20140127
  Serious: Yes (Hospitalization, Other)
  Sender: FDA-Public Use
  Company Number: CA-ABBOTT-13P-028-1039994-00

PATIENT
  Age: 45 None
  Sex: Female
  Weight: 68.1 kg

DRUGS (12)
  1. HUMIRA [Suspect]
     Indication: CROHN^S DISEASE
     Route: 058
     Dates: start: 20091013, end: 20130212
  2. MORPHINE SULFATE [Concomitant]
     Indication: CROHN^S DISEASE
     Route: 048
     Dates: start: 2000
  3. MORPHINE SULFATE [Concomitant]
     Indication: PAIN
     Route: 048
     Dates: start: 1983
  4. VITAMIN B12 [Concomitant]
     Indication: CROHN^S DISEASE
     Route: 058
     Dates: start: 1993
  5. TEGRETOL [Concomitant]
     Indication: CONVULSION
     Route: 048
     Dates: start: 1978
  6. TEGRETOL [Concomitant]
     Indication: EPILEPSY
  7. TEGRETOL [Concomitant]
     Route: 048
     Dates: start: 1983
  8. CLONAZEPAM [Concomitant]
     Indication: CONVULSION
     Route: 048
     Dates: start: 1978
  9. CLONAZEPAM [Concomitant]
     Route: 048
     Dates: start: 1983
  10. TECTA [Concomitant]
     Indication: GASTROOESOPHAGEAL REFLUX DISEASE
     Route: 048
     Dates: start: 2011
  11. TECTA [Concomitant]
     Dates: start: 20120417
  12. TRAZODONE [Concomitant]
     Indication: INSOMNIA
     Route: 048
     Dates: start: 2003

REACTIONS (3)
  - Epilepsy [Recovered/Resolved]
  - Headache [Not Recovered/Not Resolved]
  - Abdominal tenderness [Not Recovered/Not Resolved]
